FAERS Safety Report 9869507 (Version 1)
Quarter: 2014Q1

REPORT INFORMATION
  Report Type: Report from Study
  Country: FR (occurrence: FR)
  Receive Date: 20140205
  Receipt Date: 20140205
  Transmission Date: 20141002
  Serious: Yes (Other)
  Sender: FDA-Public Use
  Company Number: FR-ROCHE-1342651

PATIENT
  Age: 77 Year
  Sex: Female
  Weight: 61 kg

DRUGS (6)
  1. RITUXIMAB [Suspect]
     Indication: CHRONIC LYMPHOCYTIC LEUKAEMIA
     Dosage: ON DAY 1 AND DAY14
     Route: 042
     Dates: start: 20110322, end: 20110616
  2. RITUXIMAB [Suspect]
     Dosage: 810 MG - 875 MG
     Route: 042
     Dates: start: 20110926, end: 20131002
  3. FLUDARABINE [Suspect]
     Indication: CHRONIC LYMPHOCYTIC LEUKAEMIA
     Dosage: 3 DAYS PER 1 MONTH
     Route: 048
     Dates: start: 20110324, end: 20110620
  4. CYCLOPHOSPHAMIDE [Suspect]
     Indication: CHRONIC LYMPHOCYTIC LEUKAEMIA
     Dosage: 3 DAYS PER 1 MONTH
     Route: 048
     Dates: start: 20110324, end: 20110620
  5. ZELITREX [Concomitant]
     Route: 065
     Dates: start: 20110323
  6. PENTACARINAT [Concomitant]
     Route: 065
     Dates: start: 20130115

REACTIONS (1)
  - Alopecia [Unknown]
